FAERS Safety Report 13083562 (Version 5)
Quarter: 2017Q1

REPORT INFORMATION
  Report Type: Spontaneous
  Country: IT (occurrence: IT)
  Receive Date: 20170104
  Receipt Date: 20170206
  Transmission Date: 20170428
  Serious: Yes (Hospitalization)
  Sender: FDA-Public Use
  Company Number: IT-TEVA-725533ACC

PATIENT
  Age: 83 Year
  Sex: Female

DRUGS (7)
  1. LERCANIDIPINE [Concomitant]
     Active Substance: LERCANIDIPINE
  2. NEBIVOLOL. [Concomitant]
     Active Substance: NEBIVOLOL
  3. PANTOPRAZOLE [Concomitant]
     Active Substance: PANTOPRAZOLE SODIUM
  4. ACETYLSALICYLIC ACID [Concomitant]
     Active Substance: ASPIRIN
  5. LEVOTHYROXINE. [Concomitant]
     Active Substance: LEVOTHYROXINE
  6. HYDROCHLOROTHIAZIDE W/LOSARTAN [Suspect]
     Active Substance: HYDROCHLOROTHIAZIDE\LOSARTAN
     Indication: HYPERTENSION
     Route: 065
  7. SIMVASTATIN. [Concomitant]
     Active Substance: SIMVASTATIN

REACTIONS (2)
  - Cerebral salt-wasting syndrome [Unknown]
  - Hyponatraemia [Unknown]
